FAERS Safety Report 23769136 (Version 2)
Quarter: 2024Q2

REPORT INFORMATION
  Report Type: Spontaneous
  Country: US (occurrence: US)
  Receive Date: 20240422
  Receipt Date: 20240501
  Transmission Date: 20240716
  Serious: Yes (Other)
  Sender: FDA-Public Use
  Company Number: US-AMERICAN REGENT INC-2024001412

PATIENT
  Age: 74 Year
  Sex: Male

DRUGS (2)
  1. DOPAMINE HYDROCHLORIDE [Suspect]
     Active Substance: DOPAMINE HYDROCHLORIDE
     Indication: Bradycardia
     Dosage: UNK
     Route: 042
  2. LEVOTHYROXINE [Concomitant]
     Active Substance: LEVOTHYROXINE\LEVOTHYROXINE SODIUM
     Indication: Product used for unknown indication
     Dosage: UNK
     Route: 065

REACTIONS (3)
  - Blood thyroid stimulating hormone decreased [Recovering/Resolving]
  - Symptom masked [Recovered/Resolved]
  - Product use in unapproved indication [Unknown]
